FAERS Safety Report 6574921-8 (Version None)
Quarter: 2010Q1

REPORT INFORMATION
  Report Type: 
  Country: None (occurrence: None)
  Receive Date: 20100209
  Receipt Date: 20100125
  Transmission Date: 20100710
  Serious: Yes (Other)
  Sender: FDA-Public Use
  Company Number: US-BAYER-201013525GPV

PATIENT
  Age: 66 Year
  Sex: Male
  Weight: 76 kg

DRUGS (3)
  1. SORAFENIB [Suspect]
     Indication: OESOPHAGEAL CARCINOMA
     Dates: start: 20100106, end: 20100113
  2. RDEA119 [Suspect]
     Indication: OESOPHAGEAL CARCINOMA
     Dates: start: 20100106, end: 20100113
  3. TOPROL-XL [Concomitant]
     Route: 048

REACTIONS (1)
  - LEFT VENTRICULAR DYSFUNCTION [None]
